FAERS Safety Report 7929220-6 (Version None)
Quarter: 2011Q4

REPORT INFORMATION
  Report Type: 
  Country: None (occurrence: None)
  Receive Date: 20111121
  Receipt Date: 20111115
  Transmission Date: 20120403
  Serious: Yes (Other)
  Sender: FDA-Public Use
  Company Number: IE-BRISTOL-MYERS SQUIBB COMPANY-15594286

PATIENT
  Age: 32 Year
  Sex: Female

DRUGS (5)
  1. ATAZANAVIR [Suspect]
     Indication: HIV INFECTION
     Route: 048
     Dates: start: 20090416
  2. METHADONE HCL [Suspect]
  3. ZOPICLONE [Suspect]
  4. TRUVADA [Suspect]
     Indication: HIV INFECTION
     Dosage: 1DF: 1 TABS
     Route: 048
     Dates: start: 20090416
  5. NORVIR [Suspect]
     Indication: HIV INFECTION
     Route: 048
     Dates: start: 20090416

REACTIONS (4)
  - CERVICAL INCOMPETENCE [None]
  - ANTEPARTUM HAEMORRHAGE [None]
  - PREGNANCY [None]
  - PREMATURE DELIVERY [None]
